FAERS Safety Report 5636996-X (Version None)
Quarter: 2008Q1

REPORT INFORMATION
  Report Type: 
  Country: None (occurrence: None)
  Receive Date: 20080225
  Receipt Date: 20070419
  Transmission Date: 20080703
  Serious: No
  Sender: FDA-Public Use
  Company Number: US-BRISTOL-MYERS SQUIBB COMPANY-13753389

PATIENT
  Age: 63 Year
  Sex: Female
  Weight: 73 kg

DRUGS (11)
  1. GLUCOPHAGE [Suspect]
     Indication: GLUCOSE TOLERANCE IMPAIRED
  2. BYETTA [Suspect]
     Indication: GLUCOSE TOLERANCE IMPAIRED
     Dosage: APR-2006, DOSE INCR 10MCG, BID, SC.
     Route: 058
     Dates: start: 20060329
  3. AVANDIA [Suspect]
     Indication: GLUCOSE TOLERANCE IMPAIRED
  4. MOBIC [Suspect]
     Indication: ARTHRALGIA
  5. SYNTHROID [Concomitant]
  6. KLOR-CON [Concomitant]
  7. FUROSEMIDE [Concomitant]
     Dates: start: 20060301
  8. VITAMIN B-12 [Concomitant]
  9. CALCIUM [Concomitant]
  10. VITAMIN D [Concomitant]
  11. MAXZIDE [Concomitant]
     Dates: start: 20060301

REACTIONS (12)
  - ARTHRALGIA [None]
  - DECREASED APPETITE [None]
  - FACE OEDEMA [None]
  - FLUID RETENTION [None]
  - HUNGER [None]
  - INCREASED APPETITE [None]
  - NAUSEA [None]
  - OEDEMA PERIPHERAL [None]
  - SWELLING [None]
  - THERAPEUTIC RESPONSE UNEXPECTED [None]
  - WEIGHT DECREASED [None]
  - WEIGHT INCREASED [None]
